FAERS Safety Report 12545305 (Version 9)
Quarter: 2023Q1

REPORT INFORMATION
  Report Type: Report from Study
  Country: JP (occurrence: JP)
  Receive Date: 20160711
  Receipt Date: 20230309
  Transmission Date: 20230417
  Serious: Yes (Hospitalization, Other)
  Sender: FDA-Public Use
  Company Number: JP-PFIZER INC-2015351549

PATIENT
  Age: 36 Year
  Sex: Female
  Weight: 60 kg

DRUGS (16)
  1. SIROLIMUS [Interacting]
     Active Substance: SIROLIMUS
     Indication: Lymphangioleiomyomatosis
     Dosage: 2 MG, 1X/DAY
     Route: 048
     Dates: start: 20150609, end: 20150930
  2. SIROLIMUS [Interacting]
     Active Substance: SIROLIMUS
     Dosage: 0.2 MG, 1X/DAY
     Route: 048
     Dates: start: 20200121
  3. TASIGNA [Interacting]
     Active Substance: NILOTINIB
     Indication: Chronic myeloid leukaemia
     Dosage: 300 MG, 2X/DAY
     Route: 048
     Dates: start: 20150911, end: 20150930
  4. TASIGNA [Interacting]
     Active Substance: NILOTINIB
     Dosage: UNK
     Dates: start: 20151013
  5. LOXOPROFEN SODIUM DIHYDRATE [Concomitant]
     Active Substance: LOXOPROFEN SODIUM DIHYDRATE
     Indication: Headache
     Dosage: 60 MG, AS NEEDED
     Route: 048
  6. LOXOPROFEN SODIUM DIHYDRATE [Concomitant]
     Active Substance: LOXOPROFEN SODIUM DIHYDRATE
     Dosage: UNK
     Route: 048
  7. REBAMIPIDE [Concomitant]
     Active Substance: REBAMIPIDE
     Dosage: 100 MG
     Route: 048
     Dates: start: 20151007, end: 20151017
  8. MAGNESIUM CITRATE [Concomitant]
     Active Substance: MAGNESIUM CITRATE
     Dosage: 50 G
     Route: 048
     Dates: start: 20151006, end: 20151006
  9. SODIUM PICOSULFATE [Concomitant]
     Active Substance: SODIUM PICOSULFATE
     Dosage: UNK
     Route: 048
     Dates: start: 20151006, end: 20151006
  10. SENNOSIDES A AND B [Concomitant]
     Active Substance: SENNOSIDES A AND B
     Indication: Prophylaxis
     Dosage: UNK
     Route: 048
     Dates: start: 20150609, end: 20150613
  11. FUROSEMIDE [Concomitant]
     Active Substance: FUROSEMIDE
     Indication: Lymphangioleiomyomatosis
     Dosage: UNK
     Route: 048
  12. GLYCOSAMINOGLYCANS [Concomitant]
     Active Substance: GLYCOSAMINOGLYCANS
     Indication: Dry skin
     Dosage: UNK
     Route: 065
  13. AMBROXOL HYDROCHLORIDE [Concomitant]
     Active Substance: AMBROXOL HYDROCHLORIDE
     Indication: Lymphangioleiomyomatosis
     Dosage: UNK
     Route: 048
     Dates: end: 20200624
  14. SPIRONOLACTONE [Concomitant]
     Active Substance: SPIRONOLACTONE
     Indication: Lymphangioleiomyomatosis
     Dosage: UNK
     Route: 048
  15. CARBOCYSTEINE [Concomitant]
     Active Substance: CARBOCYSTEINE
     Indication: Lymphangioleiomyomatosis
     Dosage: UNK
     Route: 048
  16. OLODATEROL HYDROCHLORIDE\TIOTROPIUM BROMIDE MONOHYDRATE [Concomitant]
     Active Substance: OLODATEROL HYDROCHLORIDE\TIOTROPIUM BROMIDE MONOHYDRATE
     Indication: Lymphangioleiomyomatosis
     Dosage: UNK
     Route: 055

REACTIONS (19)
  - Chronic myeloid leukaemia [Not Recovered/Not Resolved]
  - Anal abscess [Not Recovered/Not Resolved]
  - Respiratory tract infection [Recovered/Resolved]
  - Drug interaction [Not Recovered/Not Resolved]
  - Proctalgia [Not Recovered/Not Resolved]
  - Glossitis [Recovered/Resolved]
  - Dermatitis acneiform [Recovering/Resolving]
  - Diarrhoea [Recovered/Resolved]
  - Dysmenorrhoea [Unknown]
  - Menstruation irregular [Unknown]
  - Headache [Recovered/Resolved]
  - Back pain [Recovered/Resolved]
  - Liver function test increased [Recovered/Resolved]
  - Constipation [Recovering/Resolving]
  - Oral herpes [Unknown]
  - Pleural effusion [Not Recovered/Not Resolved]
  - Drug level increased [Recovered/Resolved]
  - Wrong technique in product usage process [Unknown]
  - Weight increased [Not Recovered/Not Resolved]

NARRATIVE: CASE EVENT DATE: 20150616
